FAERS Safety Report 8583452-5 (Version None)
Quarter: 2012Q3

REPORT INFORMATION
  Report Type: 
  Country: None (occurrence: None)
  Receive Date: 20120809
  Receipt Date: 20120806
  Transmission Date: 20120928
  Serious: Yes (Other)
  Sender: FDA-Public Use
  Company Number: AU-ROCHE-1079196

PATIENT
  Sex: Female

DRUGS (3)
  1. ACETAMINOPHEN [Concomitant]
     Route: 048
     Dates: start: 20120320, end: 20120320
  2. EFUDEX [Concomitant]
     Indication: SQUAMOUS CELL CARCINOMA
     Dosage: 5%
     Route: 061
     Dates: start: 20120209, end: 20120302
  3. ZELBORAF [Suspect]
     Indication: METASTATIC MALIGNANT MELANOMA
     Route: 048
     Dates: start: 20120301, end: 20120426

REACTIONS (1)
  - DISEASE PROGRESSION [None]
